FAERS Safety Report 11745812 (Version 1)
Quarter: 2015Q4

REPORT INFORMATION
  Report Type: Spontaneous
  Country: US (occurrence: None)
  Receive Date: 20151116
  Receipt Date: 20151116
  Transmission Date: 20160304
  Serious: No
  Sender: FDA-Public Use
  Company Number: None

PATIENT
  Age: 9 Year
  Sex: Male
  Weight: 40.82 kg

DRUGS (2)
  1. FLINTSTONE^S MULTI-VITAMIN [Suspect]
     Active Substance: VITAMINS
  2. DAYTRANA [Suspect]
     Active Substance: METHYLPHENIDATE
     Indication: ATTENTION DEFICIT/HYPERACTIVITY DISORDER
     Dosage: APPLIED AS MEDICATED PATCH TO SKIN
     Route: 061
     Dates: start: 20151103, end: 20151113

REACTIONS (2)
  - Device issue [None]
  - Incorrect dose administered by device [None]

NARRATIVE: CASE EVENT DATE: 20151030
